FAERS Safety Report 22177234 (Version 1)
Quarter: 2023Q2

REPORT INFORMATION
  Report Type: Spontaneous
  Country: US (occurrence: US)
  Receive Date: 20230405
  Receipt Date: 20230405
  Transmission Date: 20230721
  Serious: Yes (Hospitalization)
  Sender: FDA-Public Use
  Company Number: US-ELI_LILLY_AND_COMPANY-US202303016528

PATIENT
  Age: 87 Year
  Sex: Female
  Weight: 63.946 kg

DRUGS (3)
  1. ADCIRCA [Suspect]
     Active Substance: TADALAFIL
     Indication: Pulmonary arterial hypertension
     Dosage: UNK UNK, UNKNOWN
     Route: 065
  2. REMODULIN [Suspect]
     Active Substance: TREPROSTINIL
     Indication: Pulmonary arterial hypertension
     Dosage: UNK UNK, DAILY (94 NG/KG/ M I N. PHARMA CY FILLED CASSET TE. RATE OF 44 MCL PER HOUR)
     Route: 058
     Dates: start: 20100909
  3. REMODULIN [Suspect]
     Active Substance: TREPROSTINIL
     Dosage: UNK UNK, DAILY (94 NG/KG/ M I N. PHARMA CY FILLED CASSET TE. RATE OF 44 MCL PER HOUR)
     Route: 058
     Dates: start: 20230119

REACTIONS (5)
  - Chills [Unknown]
  - Feeling cold [Unknown]
  - Neuropathy peripheral [Unknown]
  - Dyspnoea [Unknown]
  - Overdose [Unknown]

NARRATIVE: CASE EVENT DATE: 20230326
